FAERS Safety Report 4568723-1 (Version None)
Quarter: 2005Q1

REPORT INFORMATION
  Report Type: 
  Country: None (occurrence: None)
  Receive Date: 20050202
  Receipt Date: 20031121
  Transmission Date: 20050727
  Serious: Yes (Hospitalization, Disabling, Other)
  Sender: FDA-Public Use
  Company Number: US-MERCK-0311USA02544

PATIENT
  Age: 60 Year
  Sex: Female
  Weight: 102 kg

DRUGS (18)
  1. VIOXX [Suspect]
     Indication: RHEUMATOID ARTHRITIS
     Route: 048
     Dates: start: 20000401, end: 20010801
  2. DARVOCET-N 100 [Concomitant]
     Indication: ARTHRITIS
     Route: 065
     Dates: start: 20000228, end: 20040601
  3. SYNTHROID [Concomitant]
     Indication: HYPOTHYROIDISM
     Route: 065
  4. PREVACID [Concomitant]
     Indication: GASTRIC DISORDER
     Route: 065
     Dates: start: 19840101
  5. ACCUPRIL [Concomitant]
     Indication: HYPERTENSION
     Route: 065
  6. NORVASC [Concomitant]
     Indication: HYPERTENSION
     Route: 065
  7. HYDRODIURIL [Concomitant]
     Indication: HYPERTENSION
     Route: 065
  8. CLARITIN [Concomitant]
     Indication: HYPERSENSITIVITY
     Route: 065
  9. CEFTIN [Concomitant]
     Indication: INFECTION
     Route: 065
  10. COMBIVENT [Concomitant]
     Indication: DYSPNOEA
     Route: 065
  11. ALBUTEROL [Concomitant]
     Indication: DYSPNOEA
     Route: 065
  12. ZESTRIL [Concomitant]
     Indication: HYPERTENSION
     Route: 065
     Dates: start: 20010801, end: 20010901
  13. COREG [Concomitant]
     Indication: CARDIAC FAILURE
     Route: 065
     Dates: start: 20010701, end: 20030201
  14. LASIX [Concomitant]
     Indication: OEDEMA PERIPHERAL
     Route: 065
     Dates: start: 20010701
  15. ASPIRIN [Concomitant]
     Route: 065
     Dates: start: 20010701
  16. PREMPRO [Concomitant]
     Indication: HORMONE REPLACEMENT THERAPY
     Route: 065
     Dates: start: 20000501
  17. THEOPHYLLINE [Concomitant]
     Indication: DYSPNOEA
     Route: 065
     Dates: start: 20010401
  18. METAB-O-LITE [Concomitant]
     Route: 065
     Dates: start: 20000101, end: 20010101

REACTIONS (12)
  - CARDIAC FAILURE CONGESTIVE [None]
  - DIABETES MELLITUS [None]
  - EMOTIONAL DISORDER [None]
  - INJURY [None]
  - ISCHAEMIC CARDIOMYOPATHY [None]
  - MYOCARDIAL INFARCTION [None]
  - NASAL SEPTUM DEVIATION [None]
  - PNEUMONIA [None]
  - RENAL FAILURE [None]
  - RESPIRATORY FAILURE [None]
  - SINUS CONGESTION [None]
  - WHEEZING [None]
